FAERS Safety Report 8154513-X (Version None)
Quarter: 2012Q1

REPORT INFORMATION
  Report Type: 
  Country: None (occurrence: None)
  Receive Date: 20120221
  Receipt Date: 20120216
  Transmission Date: 20120608
  Serious: Yes (Death, Other)
  Sender: FDA-Public Use
  Company Number: US-ELI_LILLY_AND_COMPANY-US201112007617

PATIENT
  Sex: Male

DRUGS (4)
  1. HUMULIN R [Suspect]
     Dosage: 30 U, UNK
     Dates: start: 20111201
  2. LANTUS [Concomitant]
  3. HUMULIN R [Suspect]
     Indication: DIABETES MELLITUS
     Dosage: 30 U, UNK
  4. HUMULIN R [Suspect]
     Dosage: 45 U, UNK

REACTIONS (6)
  - DIALYSIS [None]
  - DEATH [None]
  - DRUG INEFFECTIVE [None]
  - BLOOD GLUCOSE DECREASED [None]
  - BLOOD GLUCOSE INCREASED [None]
  - HYPERHIDROSIS [None]
